FAERS Safety Report 4337849-X (Version None)
Quarter: 2004Q1

REPORT INFORMATION
  Report Type: 
  Country: None (occurrence: None)
  Receive Date: 20040326
  Receipt Date: 20031111
  Transmission Date: 20041129
  Serious: Yes (Death, Hospitalization)
  Sender: FDA-Public Use
  Company Number: 2003UW11780

PATIENT
  Age: 81 Year
  Sex: Female

DRUGS (2)
  1. ZESTRIL [Suspect]
  2. PRILOSEC [Concomitant]

REACTIONS (1)
  - CEREBROVASCULAR ACCIDENT [None]
